FAERS Safety Report 5940585-7 (Version None)
Quarter: 2008Q4

REPORT INFORMATION
  Report Type: 
  Country: None (occurrence: None)
  Receive Date: 20081103
  Receipt Date: 20081103
  Transmission Date: 20090506
  Serious: Yes (Other)
  Sender: FDA-Public Use
  Company Number: None

PATIENT
  Age: 20 Year
  Sex: Female

DRUGS (2)
  1. MEDROXYPROGESTERONE ACETATE [Suspect]
     Indication: CONTRACEPTION
     Dosage: 150MG IM Q 3 MONTHS IM
     Route: 030
     Dates: start: 20060301
  2. MEDROXYPROGESTERONE ACETATE [Suspect]
     Indication: CONTRACEPTION
     Dosage: 150MG IM Q 3 MONTHS IM
     Route: 030
     Dates: start: 20060601

REACTIONS (3)
  - INJECTION SITE PAIN [None]
  - PRODUCT QUALITY ISSUE [None]
  - SKIN DISORDER [None]
